FAERS Safety Report 24836570 (Version 4)
Quarter: 2025Q3

REPORT INFORMATION
  Report Type: Report from Study
  Country: US (occurrence: US)
  Receive Date: 20250113
  Receipt Date: 20250803
  Transmission Date: 20251021
  Serious: Yes (Other)
  Sender: ALEXION PHARMACEUTICALS
  Company Number: US-AstraZeneca-CH-00780853A

PATIENT
  Sex: Female

DRUGS (2)
  1. ULTOMIRIS [Suspect]
     Active Substance: RAVULIZUMAB-CWVZ
     Indication: Myasthenia gravis
  2. SOLIRIS [Suspect]
     Active Substance: ECULIZUMAB
     Indication: Myasthenia gravis

REACTIONS (6)
  - Transient ischaemic attack [Unknown]
  - Headache [Unknown]
  - Fatigue [Unknown]
  - Central nervous system lesion [Unknown]
  - Communication disorder [Recovered/Resolved]
  - Drug effect less than expected [Unknown]
